FAERS Safety Report 20817991 (Version 2)
Quarter: 2022Q2

REPORT INFORMATION
  Report Type: Spontaneous
  Country: US (occurrence: US)
  Receive Date: 20220512
  Receipt Date: 20220524
  Transmission Date: 20220720
  Serious: Yes (Other)
  Sender: FDA-Public Use
  Company Number: None

PATIENT
  Age: 9 Year
  Sex: Male

DRUGS (12)
  1. METHOTREXATE [Suspect]
     Active Substance: METHOTREXATE
     Indication: Dermatomyositis
     Dosage: UNK
     Route: 065
  2. TACROLIMUS [Suspect]
     Active Substance: TACROLIMUS
     Indication: Dermatomyositis
     Dosage: UNK
     Route: 065
  3. PREDNISOLONE [Suspect]
     Active Substance: PREDNISOLONE
     Indication: Dermatomyositis
     Dosage: UNK, 1 DIALY
     Route: 048
  4. MYCOPHENOLATE MOFETIL [Suspect]
     Active Substance: MYCOPHENOLATE MOFETIL
     Indication: Dermatomyositis
     Dosage: UNK
     Route: 065
  5. AZATHIOPRINE [Suspect]
     Active Substance: AZATHIOPRINE
     Indication: Dermatomyositis
     Dosage: UNK
     Route: 065
  6. CYCLOPHOSPHAMIDE [Suspect]
     Active Substance: CYCLOPHOSPHAMIDE
     Indication: Dermatomyositis
     Dosage: UNK
     Route: 065
  7. RITUXIMAB [Suspect]
     Active Substance: RITUXIMAB
     Indication: Dermatomyositis
     Dosage: UNK
     Route: 065
  8. METHYLPREDNISOLONE [Suspect]
     Active Substance: METHYLPREDNISOLONE
     Indication: Dermatomyositis
     Dosage: UNK (INTERMITTENT PULSE)
     Route: 065
  9. HYDROXYCHLOROQUINE [Concomitant]
     Active Substance: HYDROXYCHLOROQUINE
     Indication: Dermatomyositis
     Dosage: UNK
     Route: 065
  10. ETANERCEPT [Concomitant]
     Active Substance: ETANERCEPT
     Indication: Dermatomyositis
     Dosage: UNK
     Route: 065
  11. ABATACEPT [Concomitant]
     Active Substance: ABATACEPT
     Indication: Dermatomyositis
     Dosage: UNK
     Route: 065
  12. INFLIXIMAB [Concomitant]
     Active Substance: INFLIXIMAB
     Indication: Colitis
     Dosage: UNK (INFUSION)
     Route: 065

REACTIONS (3)
  - Portal hypertension [Unknown]
  - Nodular regenerative hyperplasia [Recovered/Resolved]
  - Off label use [Unknown]
